FAERS Safety Report 14807741 (Version 1)
Quarter: 2018Q2

REPORT INFORMATION
  Report Type: Spontaneous
  Country: FR (occurrence: FR)
  Receive Date: 20180425
  Receipt Date: 20180425
  Transmission Date: 20180711
  Serious: Yes (Hospitalization)
  Sender: FDA-Public Use
  Company Number: FR-PFIZER INC-2018164896

PATIENT
  Age: 70 Year
  Sex: Female
  Weight: 56 kg

DRUGS (8)
  1. HYDREA [Concomitant]
     Active Substance: HYDROXYUREA
     Indication: ACUTE MYELOID LEUKAEMIA
     Dosage: 1-0-0, 500 MG, 1X/DAY
     Route: 048
  2. PRAVASTATINE ACCORD [Concomitant]
     Active Substance: PRAVASTATIN SODIUM
     Indication: DYSLIPIDAEMIA
     Dosage: 0-0-1, 20 MG, 1X/DAY
     Route: 048
  3. LOVENOX [Suspect]
     Active Substance: ENOXAPARIN SODIUM
     Indication: CEREBROVASCULAR ACCIDENT
     Dosage: 0-0-1
     Route: 058
     Dates: start: 20180216, end: 20180227
  4. SALAZOPYRINE [Suspect]
     Active Substance: SULFASALAZINE
     Indication: COLITIS
     Dosage: 2000 MG, 1X/DAY, 2-0-2
     Route: 048
     Dates: start: 20180216, end: 20180227
  5. NEBIVOLOL EG [Concomitant]
     Active Substance: NEBIVOLOL HYDROCHLORIDE
     Indication: HYPERTENSION
     Dosage: 0.5-0-0, 2.5 MG, 1X/DAY
     Route: 048
  6. KARDEGIC [Concomitant]
     Active Substance: ASPIRIN DL-LYSINE
     Indication: ACUTE MYELOID LEUKAEMIA
     Dosage: 1-0-0
     Route: 048
  7. RAMIPRIL/HYDROCHLOROTHIAZIDE EG [Concomitant]
     Indication: HYPERTENSION
     Dosage: 1-0-0, 1DF, 1X/DAY
     Route: 048
  8. NICARDIPINE AGUETTANT [Suspect]
     Active Substance: NICARDIPINE
     Indication: CEREBROVASCULAR ACCIDENT
     Dosage: 48 MG IN 24 HOURS CONTINUOSLY
     Route: 042
     Dates: start: 20180216, end: 20180221

REACTIONS (2)
  - Pruritus [Recovered/Resolved]
  - Rash morbilliform [Recovered/Resolved]

NARRATIVE: CASE EVENT DATE: 20180225
